FAERS Safety Report 16973335 (Version 1)
Quarter: 2019Q4

REPORT INFORMATION
  Report Type: Spontaneous
  Country: US (occurrence: US)
  Receive Date: 20191030
  Receipt Date: 20191030
  Transmission Date: 20200122
  Serious: Yes (Other)
  Sender: FDA-Public Use
  Company Number: US-AUROBINDO-AUR-APL-2019-069876

PATIENT
  Age: 81 Year
  Sex: Male

DRUGS (1)
  1. AMIODARONE HYDROCHLORIDE. [Suspect]
     Active Substance: AMIODARONE HYDROCHLORIDE
     Indication: ATRIAL FIBRILLATION
     Dosage: UNK (INTERMITTENT AMIODARONE USE IN THE LAST YEAR)
     Route: 065

REACTIONS (3)
  - Hypersensitivity pneumonitis [Recovering/Resolving]
  - Toxicity to various agents [Recovering/Resolving]
  - Idiopathic pulmonary fibrosis [Recovering/Resolving]
